FAERS Safety Report 5234946-1 (Version None)
Quarter: 2007Q1

REPORT INFORMATION
  Report Type: 
  Country: None (occurrence: None)
  Receive Date: 20070209
  Receipt Date: 20070131
  Transmission Date: 20070707
  Serious: Yes (Hospitalization, Other)
  Sender: FDA-Public Use
  Company Number: US-PFIZER INC-2007009745

PATIENT
  Sex: Female
  Weight: 65.8 kg

DRUGS (9)
  1. ZOLOFT [Suspect]
     Indication: DEPRESSION
     Dosage: TEXT:UNKNOWN
  2. DILANTIN [Suspect]
     Indication: PROPHYLAXIS
     Dosage: TEXT:UNKNOWN
  3. ARICEPT [Suspect]
     Indication: DEMENTIA
     Dosage: TEXT:UNKNOWN
  4. NAMENDA [Suspect]
     Indication: DEMENTIA
     Dosage: TEXT:UNKNOWN
  5. DEPAKOTE [Suspect]
     Indication: CONVULSION
     Dosage: TEXT:UNKNOWN
     Dates: start: 20060101, end: 20060201
  6. SYNTHROID [Concomitant]
  7. PLAVIX [Concomitant]
  8. ACTONEL [Concomitant]
     Dates: end: 20061201
  9. LAXATIVES [Concomitant]

REACTIONS (22)
  - ABASIA [None]
  - ANTICONVULSANT DRUG LEVEL ABOVE THERAPEUTIC [None]
  - ANTICONVULSANT DRUG LEVEL BELOW THERAPEUTIC [None]
  - APALLIC SYNDROME [None]
  - APHASIA [None]
  - CEREBROVASCULAR ACCIDENT [None]
  - COMA [None]
  - CONFUSIONAL STATE [None]
  - CONVULSION [None]
  - DELUSION [None]
  - DISSOCIATION [None]
  - DYSARTHRIA [None]
  - HALLUCINATION [None]
  - HEPATOCELLULAR DAMAGE [None]
  - LETHARGY [None]
  - MOVEMENT DISORDER [None]
  - NERVOUSNESS [None]
  - PARANOIA [None]
  - PICA [None]
  - SOMNOLENCE [None]
  - TREMOR [None]
  - WEIGHT DECREASED [None]
